FAERS Safety Report 5986342-7 (Version None)
Quarter: 2008Q4

REPORT INFORMATION
  Report Type: 
  Country: None (occurrence: None)
  Receive Date: 20081203
  Receipt Date: 20081119
  Transmission Date: 20090506
  Serious: Yes (Death)
  Sender: FDA-Public Use
  Company Number: A-CH2008-22799

PATIENT
  Age: 31 Year
  Sex: Female
  Weight: 52 kg

DRUGS (3)
  1. TRACLEER [Suspect]
     Indication: SYSTEMIC LUPUS ERYTHEMATOSUS
     Dosage: 125 MG, BID, ORAL
     Route: 048
     Dates: start: 20070401
  2. AZATHIOPRINE [Concomitant]
  3. ENALAPRIL MALEATE [Concomitant]

REACTIONS (2)
  - AZOTAEMIA [None]
  - OFF LABEL USE [None]
